FAERS Safety Report 7575204-X (Version None)
Quarter: 2011Q2

REPORT INFORMATION
  Report Type: 
  Country: None (occurrence: None)
  Receive Date: 20110627
  Receipt Date: 20100616
  Transmission Date: 20111010
  Serious: Yes (Hospitalization)
  Sender: FDA-Public Use
  Company Number: AT-CEPHALON-2011003242

PATIENT
  Sex: Female
  Weight: 79 kg

DRUGS (2)
  1. MABCAMPATH [Suspect]
     Dates: start: 20100429, end: 20100531
  2. BENDAMUSTINE HCL [Suspect]
     Route: 042
     Dates: start: 20100503, end: 20100504

REACTIONS (2)
  - PANCYTOPENIA [None]
  - FEBRILE NEUTROPENIA [None]
